FAERS Safety Report 23902452 (Version 1)
Quarter: 2024Q2

REPORT INFORMATION
  Report Type: Spontaneous
  Country: US (occurrence: None)
  Receive Date: 20240527
  Receipt Date: 20240527
  Transmission Date: 20240716
  Serious: No
  Sender: FDA-Public Use
  Company Number: US-ROCHE-3527910

PATIENT
  Age: 60 Year
  Sex: Female
  Weight: 74.91 kg

DRUGS (15)
  1. ACTEMRA [Suspect]
     Active Substance: TOCILIZUMAB
     Indication: Giant cell arteritis
     Route: 058
     Dates: start: 20240302
  2. ACTEMRA [Suspect]
     Active Substance: TOCILIZUMAB
  3. LISINOPRIL [Concomitant]
     Active Substance: LISINOPRIL
     Indication: Hypertension
     Route: 048
     Dates: start: 2023
  4. JARDIANCE [Concomitant]
     Active Substance: EMPAGLIFLOZIN
     Route: 048
     Dates: start: 20231001
  5. PREDNISONE [Concomitant]
     Active Substance: PREDNISONE
     Indication: Arteritis
     Route: 048
     Dates: start: 20240216, end: 20240301
  6. PREDNISONE [Concomitant]
     Active Substance: PREDNISONE
     Dosage: EACH WEEK TAPER DOWN BY 1 TABLET UNTIL COMPLETED
     Route: 048
     Dates: start: 20240302
  7. PLAVIX [Concomitant]
     Active Substance: CLOPIDOGREL BISULFATE
     Route: 048
     Dates: start: 2023
  8. LORAZEPAM [Concomitant]
     Active Substance: LORAZEPAM
     Indication: Panic attack
     Route: 048
     Dates: start: 202309
  9. BUSPIRONE HCL [Concomitant]
     Active Substance: BUSPIRONE HYDROCHLORIDE
     Indication: Panic attack
     Dosage: 1 IN THE MORNING AND 1 IN THE EVENING
     Route: 048
     Dates: start: 202309
  10. LIPITOR [Concomitant]
     Active Substance: ATORVASTATIN CALCIUM
     Indication: Blood cholesterol
     Dosage: TAKE AT NIGHT
     Route: 048
     Dates: start: 2023
  11. ASPIRIN [Concomitant]
     Active Substance: ASPIRIN
     Dosage: TAKE AT NIGHT
     Route: 048
     Dates: start: 20231001
  12. KEPPRA [Concomitant]
     Active Substance: LEVETIRACETAM
     Indication: Seizure
     Route: 048
     Dates: start: 2023
  13. PAROXETINE [Concomitant]
     Active Substance: PAROXETINE
     Indication: Anxiety
     Dosage: TAKE AT NIGHT
     Route: 048
     Dates: start: 202402
  14. CLONIDINE [Concomitant]
     Active Substance: CLONIDINE
     Route: 048
     Dates: start: 2023
  15. VITAMIN D2 [Concomitant]
     Active Substance: ERGOCALCIFEROL
     Indication: Vitamin D decreased
     Dosage: ON SATURDAYS
     Route: 048
     Dates: start: 20240216

REACTIONS (3)
  - Blood glucose increased [Not Recovered/Not Resolved]
  - Fatigue [Not Recovered/Not Resolved]
  - Asthenia [Not Recovered/Not Resolved]

NARRATIVE: CASE EVENT DATE: 20240309
